FAERS Safety Report 10222371 (Version 1)
Quarter: 2014Q2

REPORT INFORMATION
  Report Type: Spontaneous
  Country: JP (occurrence: JP)
  Receive Date: 20140606
  Receipt Date: 20140606
  Transmission Date: 20141212
  Serious: Yes (Other)
  Sender: FDA-Public Use
  Company Number: JP-JNJFOC-20140600069

PATIENT
  Age: 3 Decade
  Sex: Female

DRUGS (4)
  1. ITRIZOLE [Suspect]
     Indication: FUNGAL CYSTITIS
     Route: 048
  2. MEDROL [Concomitant]
     Route: 048
  3. TACROLIMUS HYDRATE [Concomitant]
  4. EVEROLIMUS [Concomitant]
     Route: 048

REACTIONS (2)
  - Diabetes mellitus [Recovering/Resolving]
  - Hepatic function abnormal [Unknown]
